FAERS Safety Report 9608585 (Version 1)
Quarter: 2013Q4

REPORT INFORMATION
  Report Type: Report from Study
  Country: FR (occurrence: FR)
  Receive Date: 20131009
  Receipt Date: 20131009
  Transmission Date: 20140711
  Serious: Yes (Hospitalization)
  Sender: FDA-Public Use
  Company Number: FR-SA-2013SA098609

PATIENT
  Age: 75 Year
  Sex: Male

DRUGS (11)
  1. CAMPATH [Suspect]
     Indication: CHRONIC LYMPHOCYTIC LEUKAEMIA
     Route: 042
     Dates: start: 20130408, end: 20130411
  2. CAMPATH [Suspect]
     Indication: CHRONIC LYMPHOCYTIC LEUKAEMIA
     Route: 042
     Dates: start: 20130415, end: 20130628
  3. PLAVIX [Concomitant]
  4. HYPERIUM [Concomitant]
  5. LEVOTHYROX [Concomitant]
     Dosage: DOSE:125 UNIT(S)
  6. INEXIUM [Concomitant]
     Dosage: DOSE:40 UNIT(S)
  7. LERCANIDIPINE [Concomitant]
     Dosage: TWO IN THE MORNING
  8. FUROSEMIDE [Concomitant]
     Dosage: 2 IN THE MORNING, 1 AT NOON
  9. BROMAZEPAM [Concomitant]
     Dosage: 0.5 PER DAY
  10. NEBIVOLOL [Concomitant]
     Dosage: 0.5 IN THE MORNING
  11. EUPRESSYL [Concomitant]

REACTIONS (1)
  - Renal failure chronic [Recovered/Resolved]
